FAERS Safety Report 5293190-2 (Version None)
Quarter: 2007Q2

REPORT INFORMATION
  Report Type: 
  Country: None (occurrence: None)
  Receive Date: 20070404
  Receipt Date: 20070327
  Transmission Date: 20071010
  Serious: Yes (Other)
  Sender: FDA-Public Use
  Company Number: OSCN-PR-0703S-0137

PATIENT
  Age: 42 Year
  Sex: Male

DRUGS (1)
  1. OMNISCAN [Suspect]
     Indication: MYELITIS
     Dosage: 13 ML, SINGLE DOSE, I.V.
     Route: 042
     Dates: start: 20051101, end: 20051101

REACTIONS (5)
  - CHILLS [None]
  - JOINT SWELLING [None]
  - NEPHROGENIC FIBROSING DERMOPATHY [None]
  - SCLERODERMA [None]
  - WEIGHT DECREASED [None]
